FAERS Safety Report 8774714 (Version 2)
Quarter: 2012Q4

REPORT INFORMATION
  Report Type: 
  Country: US (occurrence: US)
  Receive Date: 20120910
  Receipt Date: 20121126
  Transmission Date: 20130627
  Serious: No
  Sender: FDA-Public Use
  Company Number: US-PFIZER INC-2012221579

PATIENT
  Age: 49 Year
  Sex: Female
  Weight: 129 kg

DRUGS (4)
  1. CHANTIX [Suspect]
     Indication: SMOKING CESSATION THERAPY
     Dosage: 1 mg, 2x/day
     Route: 048
     Dates: start: 201207
  2. METOPROLOL [Concomitant]
     Indication: HYPERTENSION
     Dosage: 50 mg, 2x/day
  3. ATACAND [Concomitant]
     Indication: HYPERTENSION
     Dosage: 32 mg daily
     Dates: start: 2011
  4. LEXAPRO [Concomitant]
     Dosage: 20 mg daily
     Dates: start: 2011

REACTIONS (3)
  - Skin lesion [Not Recovered/Not Resolved]
  - Swelling face [Not Recovered/Not Resolved]
  - Arthropod bite [Recovered/Resolved]
